FAERS Safety Report 6882416-7 (Version None)
Quarter: 2010Q3

REPORT INFORMATION
  Report Type: 
  Country: None (occurrence: None)
  Receive Date: 20100728
  Receipt Date: 20100728
  Transmission Date: 20110219
  Serious: Yes (Hospitalization)
  Sender: FDA-Public Use
  Company Number: None

PATIENT
  Age: 68 Year
  Sex: Female

DRUGS (11)
  1. RANIBIZUMAB 0.5 MG [Suspect]
     Indication: CYTOMEGALOVIRUS INFECTION
     Dosage: 0.5 MG,PRN INTRAVITREOUS
     Route: 001
     Dates: start: 20090120, end: 20090416
  2. RANIBIZUMAB 0.5 MG [Suspect]
     Indication: EYE INFECTION
     Dosage: 0.5 MG,PRN INTRAVITREOUS
     Route: 001
     Dates: start: 20090120, end: 20090416
  3. RANIBIZUMAB 0.5 MG [Suspect]
     Indication: HISTOPLASMOSIS
     Dosage: 0.5 MG,PRN INTRAVITREOUS
     Route: 001
     Dates: start: 20090120, end: 20090416
  4. RANIBIZUMAB 0.5 MG [Suspect]
     Indication: CYTOMEGALOVIRUS INFECTION
     Dosage: 0.5 MG,PRN INTRAVITREOUS
     Route: 001
     Dates: start: 20091120, end: 20091215
  5. RANIBIZUMAB 0.5 MG [Suspect]
     Indication: EYE INFECTION
     Dosage: 0.5 MG,PRN INTRAVITREOUS
     Route: 001
     Dates: start: 20091120, end: 20091215
  6. RANIBIZUMAB 0.5 MG [Suspect]
     Indication: HISTOPLASMOSIS
     Dosage: 0.5 MG,PRN INTRAVITREOUS
     Route: 001
     Dates: start: 20091120, end: 20091215
  7. LEXAPRO [Concomitant]
  8. ZYRTEC [Concomitant]
  9. FISH OIL [Concomitant]
  10. VITAMIN E [Concomitant]
  11. M.V.I. [Concomitant]

REACTIONS (3)
  - DIZZINESS [None]
  - HYPERTENSION [None]
  - NAUSEA [None]
